FAERS Safety Report 7234772-8 (Version None)
Quarter: 2010Q4

REPORT INFORMATION
  Report Type: 
  Country: None (occurrence: None)
  Receive Date: 20101130
  Receipt Date: 20100409
  Transmission Date: 20110411
  Serious: Yes (Hospitalization)
  Sender: FDA-Public Use
  Company Number: 2010SP020858

PATIENT
  Age: 31 Year
  Sex: Female
  Weight: 105.2345 kg

DRUGS (5)
  1. NUVARING [Suspect]
     Indication: CONTRACEPTION
     Dates: start: 20080515, end: 20080817
  2. ACTOS [Concomitant]
  3. LISINOPRIL [Concomitant]
  4. TYLENOL-500 [Concomitant]
  5. MULTI-VITAMIN [Concomitant]

REACTIONS (1)
  - PULMONARY EMBOLISM [None]
